FAERS Safety Report 16629372 (Version 3)
Quarter: 2019Q3

REPORT INFORMATION
  Report Type: Spontaneous
  Country: DE (occurrence: DE)
  Receive Date: 20190725
  Receipt Date: 20190920
  Transmission Date: 20191004
  Serious: Yes (Hospitalization, Other)
  Sender: FDA-Public Use
  Company Number: DE-009507513-1906DEU002396

PATIENT
  Age: 38 Year
  Sex: Male
  Weight: 75.6 kg

DRUGS (2)
  1. PROSCAR [Suspect]
     Active Substance: FINASTERIDE
     Dosage: TABLE 1.25 MG/DAY
     Route: 048
     Dates: start: 201204, end: 201708
  2. FINASTERIDE. [Suspect]
     Active Substance: FINASTERIDE
     Indication: ALOPECIA
     Dosage: 1 MILLIGRAM, 1-0-0
     Route: 048
     Dates: start: 2000, end: 2016

REACTIONS (51)
  - Respiratory arrest [Unknown]
  - Snoring [Unknown]
  - Fatigue [Unknown]
  - Depressed mood [Not Recovered/Not Resolved]
  - Sleep disorder [Unknown]
  - Persistent depressive disorder [Unknown]
  - Immunisation [Unknown]
  - Hepatitis immunisation [Unknown]
  - Seasonal allergy [Unknown]
  - Lordosis [Unknown]
  - Somatic symptom disorder [Unknown]
  - Alopecia [Unknown]
  - Somnolence [Unknown]
  - Depression [Unknown]
  - Borrelia infection [Unknown]
  - Sleep apnoea syndrome [Unknown]
  - Insomnia [Unknown]
  - Viral infection [Unknown]
  - Viral infection [Unknown]
  - Anhedonia [Unknown]
  - Fatigue [Recovering/Resolving]
  - Disturbance in attention [Not Recovered/Not Resolved]
  - Gingivitis [Unknown]
  - Viral infection [Unknown]
  - Personality disorder [Unknown]
  - Gastroenteritis [Unknown]
  - Libido decreased [Not Recovered/Not Resolved]
  - Lyme disease [Recovered/Resolved]
  - Tricuspid valve incompetence [Unknown]
  - Memory impairment [Unknown]
  - Bradyphrenia [Unknown]
  - Psychophysiologic insomnia [Unknown]
  - Periodontitis [Unknown]
  - Stress [Recovering/Resolving]
  - Depression [Recovering/Resolving]
  - Mood swings [Unknown]
  - Post 5-alpha-reductase inhibitor syndrome [Unknown]
  - General physical condition decreased [Unknown]
  - Irritability [Unknown]
  - Appendicectomy [Unknown]
  - Bronchitis [Unknown]
  - Pharyngitis [Unknown]
  - Aortic valve sclerosis [Unknown]
  - Depression [Not Recovered/Not Resolved]
  - Depressed mood [Unknown]
  - Viral infection [Unknown]
  - Apathy [Unknown]
  - Malaise [Unknown]
  - Viral infection [Unknown]
  - Viral infection [Unknown]
  - Ejaculation failure [Not Recovered/Not Resolved]

NARRATIVE: CASE EVENT DATE: 201204
